FAERS Safety Report 18021897 (Version 1)
Quarter: 2020Q3

REPORT INFORMATION
  Report Type: Spontaneous
  Country: ES (occurrence: ES)
  Receive Date: 20200714
  Receipt Date: 20200714
  Transmission Date: 20201103
  Serious: Yes (Other)
  Sender: FDA-Public Use
  Company Number: ES-PFIZER INC-2020267463

PATIENT
  Age: 66 Year
  Sex: Female
  Weight: 74 kg

DRUGS (19)
  1. AZITHROMYCIN ANHYDROUS. [Suspect]
     Active Substance: AZITHROMYCIN ANHYDROUS
     Indication: COVID-19 PNEUMONIA
     Dosage: 500 MG, 1X/DAY (500 MG EVERY 24 HOURS)
     Route: 042
     Dates: start: 20200326, end: 20200330
  2. POTASION [Concomitant]
     Active Substance: POTASSIUM CHLORIDE
  3. ADIRO [Concomitant]
     Active Substance: ASPIRIN
  4. PULMICORT TURBUHALER [Concomitant]
     Active Substance: BUDESONIDE
     Dosage: UNK
     Route: 055
  5. BISOPROLOL [Concomitant]
     Active Substance: BISOPROLOL
     Dosage: UNK
  6. DEPRAX [TRAZODONE HYDROCHLORIDE] [Concomitant]
     Dosage: UNK
  7. INHIXA [Concomitant]
     Active Substance: ENOXAPARIN SODIUM
     Dosage: UNK
  8. METHYLPREDNISOLONE SODIUM SUCCINATE. [Suspect]
     Active Substance: METHYLPREDNISOLONE SODIUM SUCCINATE
     Indication: COVID-19 PNEUMONIA
     Dosage: IV BOLUS OF 125 MG FOLLOWED OF 60 MG EVERY 24 HOURS
     Route: 042
     Dates: start: 20200330, end: 20200407
  9. FLUIMUCIL [Concomitant]
     Active Substance: ACETYLCYSTEINE
  10. LOPINAVIR/RITONAVIR [Suspect]
     Active Substance: LOPINAVIR\RITONAVIR
     Indication: COVID-19 PNEUMONIA
     Dosage: 1 DF, 2X/DAY (1 TABLET EVERY 12 HOURS)
     Route: 048
     Dates: start: 20200330, end: 20200407
  11. NOLOTIL [METAMIZOLE MAGNESIUM] [Concomitant]
     Active Substance: METAMIZOLE MAGNESIUM
     Dosage: UNK
  12. ENALAPRIL [Concomitant]
     Active Substance: ENALAPRIL
     Dosage: UNK
  13. CLOPIDOGREL [Concomitant]
     Active Substance: CLOPIDOGREL BISULFATE
     Dosage: UNK
  14. ATROVENT [Concomitant]
     Active Substance: IPRATROPIUM BROMIDE
  15. OMEPRAZOL [Concomitant]
     Active Substance: OMEPRAZOLE
     Dosage: UNK
  16. CEFTRIAXONA [Suspect]
     Active Substance: CEFTRIAXONE
     Indication: COVID-19 PNEUMONIA
     Dosage: 2 G, 1X/DAY (2 G EVERY 24 HOURS)
     Route: 042
     Dates: start: 20200326, end: 20200405
  17. DOLQUINE [Suspect]
     Active Substance: HYDROXYCHLOROQUINE SULFATE
     Indication: COVID-19 PNEUMONIA
     Dosage: 200 MG, 2X/DAY (200 MG EVERY 12 HOURS)
     Route: 048
     Dates: start: 20200326, end: 20200331
  18. PARACETAMOL [Concomitant]
     Active Substance: ACETAMINOPHEN
  19. ATORVASTATIN [Concomitant]
     Active Substance: ATORVASTATIN
     Dosage: UNK

REACTIONS (1)
  - Long QT syndrome [Recovering/Resolving]

NARRATIVE: CASE EVENT DATE: 20200331
